FAERS Safety Report 4409845-5 (Version None)
Quarter: 2004Q3

REPORT INFORMATION
  Report Type: 
  Country: None (occurrence: None)
  Receive Date: 20040728
  Receipt Date: 20030923
  Transmission Date: 20050211
  Serious: No
  Sender: FDA-Public Use
  Company Number: US-GLAXOSMITHKLINE-A0427047A

PATIENT
  Age: 62 Year
  Sex: Female

DRUGS (3)
  1. DYAZIDE [Suspect]
     Indication: HYPERTENSION
     Dosage: 75MG PER DAY
     Route: 048
  2. CARDIZEM [Concomitant]
  3. PREVACID [Concomitant]

REACTIONS (1)
  - ALOPECIA [None]
